FAERS Safety Report 6347602-3 (Version None)
Quarter: 2009Q3

REPORT INFORMATION
  Report Type: 
  Country: None (occurrence: None)
  Receive Date: 20090910
  Receipt Date: 20090902
  Transmission Date: 20100115
  Serious: Yes (Death, Other)
  Sender: FDA-Public Use
  Company Number: JP-BAYER-200912967BYL

PATIENT
  Age: 67 Year
  Sex: Male
  Weight: 68 kg

DRUGS (2)
  1. NEXAVAR [Suspect]
     Indication: HEPATIC NEOPLASM MALIGNANT
     Dosage: TOTAL DAILY DOSE: 800 MG  UNIT DOSE: 200 MG
     Route: 048
     Dates: start: 20090806, end: 20090816
  2. METHYLPREDNISOLONE [Concomitant]
     Indication: STEROID THERAPY
     Route: 065
     Dates: start: 20090812

REACTIONS (3)
  - HEPATIC FAILURE [None]
  - MELAENA [None]
  - METASTASIS [None]
